FAERS Safety Report 5372126-X (Version None)
Quarter: 2007Q2

REPORT INFORMATION
  Report Type: 
  Country: None (occurrence: None)
  Receive Date: 20070615
  Receipt Date: 20061215
  Transmission Date: 20071010
  Serious: Yes (Other)
  Sender: FDA-Public Use
  Company Number: 200620120US

PATIENT
  Age: 60 Year
  Sex: Male
  Weight: 120 kg

DRUGS (16)
  1. LANTUS         (INSULIN GLARGINE) (LANTUS) [Suspect]
     Indication: DIABETES MELLITUS NON-INSULIN-DEPENDENT
     Dosage: 40 U QAM
     Dates: start: 20061214
  2. OPTICLIK [Suspect]
     Indication: DIABETES MELLITUS NON-INSULIN-DEPENDENT
     Dates: start: 20061214
  3. INSULIN GLARGINE     (APIDRA) [Suspect]
     Indication: DIABETES MELLITUS NON-INSULIN-DEPENDENT
     Dates: start: 20061214
  4. OPTICLIK [Suspect]
     Indication: DIABETES MELLITUS NON-INSULIN-DEPENDENT
     Dates: start: 20061214
  5. COLESEVELAM HYDROCHLORIDE   (WELCHOL) [Concomitant]
  6. LIPITOR [Concomitant]
  7. LEXAPRO [Concomitant]
  8. TOPROL-XL [Concomitant]
  9. QUINAPRIL HCL [Concomitant]
  10. NORVASC [Concomitant]
  11. ZETIA [Concomitant]
  12. ISOSORBIDE DINITRATE [Concomitant]
  13. LASIX [Concomitant]
  14. HYDROCHLOROTHIAZIDE [Concomitant]
  15. INSULIN HUMAN, INSULIN HUMAN INJECTION, ISOPHANE (NOVOLIN 70/30) [Concomitant]
  16. NOVOLIN R [Concomitant]

REACTIONS (3)
  - BLOOD GLUCOSE DECREASED [None]
  - DRUG INEFFECTIVE [None]
  - HYPERGLYCAEMIA [None]
